FAERS Safety Report 18819623 (Version 2)
Quarter: 2021Q1

REPORT INFORMATION
  Report Type: Spontaneous
  Country: FI (occurrence: FI)
  Receive Date: 20210202
  Receipt Date: 20210204
  Transmission Date: 20210419
  Serious: Yes (Hospitalization, Other)
  Sender: FDA-Public Use
  Company Number: FI-JNJFOC-20210201399

PATIENT
  Sex: Male

DRUGS (1)
  1. XARELTO [Suspect]
     Active Substance: RIVAROXABAN
     Indication: VENOUS THROMBOSIS
     Dosage: UNK
     Route: 048

REACTIONS (4)
  - Product dose omission issue [Unknown]
  - Rectal haemorrhage [Unknown]
  - Chronic obstructive pulmonary disease [Unknown]
  - Venous thrombosis limb [Unknown]
